FAERS Safety Report 6872053-2 (Version None)
Quarter: 2010Q3

REPORT INFORMATION
  Report Type: 
  Country: None (occurrence: None)
  Receive Date: 20100723
  Receipt Date: 20100712
  Transmission Date: 20110219
  Serious: No
  Sender: FDA-Public Use
  Company Number: US-B.I. PHARMACEUTICALS,INC./RIDGEFIELD-2010-BP-08015BP

PATIENT
  Sex: Female

DRUGS (3)
  1. ZANTAC 150 [Suspect]
     Indication: GASTROOESOPHAGEAL REFLUX DISEASE
     Dosage: 150 MG
     Route: 048
     Dates: start: 20100614, end: 20100620
  2. DILANTIN [Concomitant]
     Indication: EPILEPSY
  3. MYSOLINE [Concomitant]
     Indication: EPILEPSY

REACTIONS (2)
  - DIARRHOEA [None]
  - ERYTHEMA [None]
